FAERS Safety Report 6888160-4 (Version None)
Quarter: 2010Q3

REPORT INFORMATION
  Report Type: 
  Country: None (occurrence: None)
  Receive Date: 20100730
  Receipt Date: 20100719
  Transmission Date: 20110219
  Serious: Yes (Other)
  Sender: FDA-Public Use
  Company Number: US-PFIZER INC-2010073055

PATIENT
  Sex: Male
  Weight: 81 kg

DRUGS (26)
  1. CHANTIX [Suspect]
     Indication: SMOKING CESSATION THERAPY
     Dosage: 0.5 MG, 1X/DAY
     Route: 048
  2. CHANTIX [Suspect]
     Indication: TOBACCO USER
     Dosage: 0.5 MG, DAILY
     Dates: start: 20100601, end: 20100101
  3. CHANTIX [Suspect]
     Dosage: 0.5 MG, 2X/DAY
     Route: 048
     Dates: start: 20100521, end: 20100525
  4. NAPROXEN [Suspect]
     Indication: PAIN
     Dosage: 500 MG, UNK
     Route: 048
  5. NIASPAN [Suspect]
     Indication: CARDIAC DISORDER
     Dosage: 1500 MG, DAILY
     Route: 048
     Dates: start: 20100101, end: 20100722
  6. NIASPAN [Suspect]
     Indication: ARTERIAL OCCLUSIVE DISEASE
     Dosage: 500 MG, 1X/DAY
  7. NIASPAN [Suspect]
     Indication: BLOOD CHOLESTEROL
  8. NIASPAN [Suspect]
     Indication: BLOOD TRIGLYCERIDES
  9. ZOLOFT [Concomitant]
     Dosage: UNK
  10. LISINOPRIL [Concomitant]
     Dosage: UNK
  11. OLMESARTAN [Concomitant]
     Indication: HYPERTENSION
     Dosage: UNK
  12. MULTI-VITAMINS [Concomitant]
     Dosage: UNK
  13. VITAMIN D [Concomitant]
     Dosage: 1000 MG, WEEKLY
  14. ALLOPURINOL [Concomitant]
     Indication: BLOOD URIC ACID ABNORMAL
     Dosage: 100 MG, DAILY
  15. LORAZEPAM [Concomitant]
     Indication: ANXIETY
     Dosage: 1 MG, DAILY
  16. LIBRIUM [Concomitant]
     Indication: ALCOHOL WITHDRAWAL SYNDROME
     Dosage: 25 MG, 2X/DAY
     Route: 048
  17. FISH OIL [Concomitant]
     Dosage: UNK
  18. POTASSIUM [Concomitant]
     Dosage: UNK
  19. BENICAR HCT [Concomitant]
     Indication: CARDIAC DISORDER
     Dosage: 40 MG/ 12.5 MG, 1X/DAY
     Route: 048
  20. LOVASTATIN [Concomitant]
     Indication: CARDIAC DISORDER
     Dosage: UNK
     Route: 048
  21. ACETYLSALICYLIC ACID [Concomitant]
     Dosage: 325 MG, 2X/DAY
  22. MAGNESIUM [Concomitant]
     Indication: BLOOD MAGNESIUM DECREASED
     Dosage: UNK
  23. CORTISONE [Concomitant]
     Indication: RASH
     Dosage: 500 MG, UNK
     Route: 061
     Dates: start: 20100616, end: 20100616
  24. EQUATE [Concomitant]
     Indication: HYPERSENSITIVITY
  25. FENOFIBRIC ACID [Concomitant]
  26. CALCIUM [Concomitant]
     Dosage: UNK

REACTIONS (19)
  - ACTIVITIES OF DAILY LIVING IMPAIRED [None]
  - ARTERIOSCLEROSIS [None]
  - BLOOD CHOLESTEROL INCREASED [None]
  - BLOOD TRIGLYCERIDES INCREASED [None]
  - CONTUSION [None]
  - FALL [None]
  - HEPATIC FUNCTION ABNORMAL [None]
  - HIP FRACTURE [None]
  - HYPERTENSION [None]
  - IMPAIRED DRIVING ABILITY [None]
  - INSOMNIA [None]
  - JOINT INJURY [None]
  - LIMB INJURY [None]
  - MOVEMENT DISORDER [None]
  - OROPHARYNGEAL BLISTERING [None]
  - PRURITUS [None]
  - ROAD TRAFFIC ACCIDENT [None]
  - SKELETAL INJURY [None]
  - URTICARIA [None]
